FAERS Safety Report 8173883-X (Version None)
Quarter: 2012Q1

REPORT INFORMATION
  Report Type: 
  Country: None (occurrence: None)
  Receive Date: 20120229
  Receipt Date: 20120221
  Transmission Date: 20120608
  Serious: Yes (Hospitalization)
  Sender: FDA-Public Use
  Company Number: US-ELI_LILLY_AND_COMPANY-US201202006478

PATIENT
  Sex: Female

DRUGS (14)
  1. FENTANYL-100 [Concomitant]
  2. CALCIUM [Concomitant]
  3. VITAMIN D [Concomitant]
  4. FORTEO [Suspect]
     Indication: OSTEOPOROSIS
     Dosage: 20 UG, QD
  5. CARDIZEM CD [Concomitant]
  6. SENOKOT [Concomitant]
  7. SPORANOX [Concomitant]
  8. FORTEO [Suspect]
     Dosage: 20 UG, QD
  9. VITAMIN TAB [Concomitant]
  10. MAGNESIUM [Concomitant]
  11. SINGULAIR [Concomitant]
     Indication: ASTHMA
  12. PREDNISONE TAB [Concomitant]
  13. NORTRIPTYLINE HCL [Concomitant]
  14. OMEPRAZOLE [Concomitant]
     Indication: GASTRIC DISORDER

REACTIONS (7)
  - FUNGAL INFECTION [None]
  - DYSPNOEA [None]
  - PNEUMONIA [None]
  - MALAISE [None]
  - MOVEMENT DISORDER [None]
  - SWELLING [None]
  - GAIT DISTURBANCE [None]
